FAERS Safety Report 5139043-1 (Version None)
Quarter: 2006Q4

REPORT INFORMATION
  Report Type: 
  Country: None (occurrence: None)
  Receive Date: 20061024
  Receipt Date: 20061016
  Transmission Date: 20070319
  Serious: Yes (Hospitalization)
  Sender: FDA-Public Use
  Company Number: TPA2006A01497

PATIENT
  Age: 80 Year
  Sex: Female
  Weight: 63.2 kg

DRUGS (14)
  1. PIOGLITAZONE HCL [Suspect]
     Indication: GLUCOSE TOLERANCE IMPAIRED
     Dosage: UNK, UNKNOWN, PER ORAL
     Route: 048
     Dates: start: 20050622
  2. PROTONIX [Concomitant]
  3. DETROL LA [Concomitant]
  4. BUMETANIDE [Concomitant]
  5. LEVOTHYROXINE SODIUM [Concomitant]
  6. CALCIUM (CALCIUM) [Concomitant]
  7. ACETAMINOPHEN [Concomitant]
  8. VITAMIN E [Concomitant]
  9. ASPIRIN [Concomitant]
  10. MULTIVITAMIN [Concomitant]
  11. CRESTOR [Concomitant]
  12. TRAMADOL HCL [Concomitant]
  13. ATENOLOL [Concomitant]
  14. OXYBUTYNIN CHLORIDE [Concomitant]

REACTIONS (1)
  - KNEE ARTHROPLASTY [None]
